FAERS Safety Report 8507586-6 (Version None)
Quarter: 2012Q3

REPORT INFORMATION
  Report Type: 
  Country: None (occurrence: None)
  Receive Date: 20120713
  Receipt Date: 20120705
  Transmission Date: 20120928
  Serious: Yes (Hospitalization)
  Sender: FDA-Public Use
  Company Number: US-BIOGENIDEC-2012BI023891

PATIENT
  Sex: Female

DRUGS (2)
  1. AVONEX [Suspect]
     Indication: MULTIPLE SCLEROSIS
     Route: 030
     Dates: start: 19980101, end: 20030101
  2. AVONEX [Suspect]
     Route: 030
     Dates: start: 20030101

REACTIONS (12)
  - CONCUSSION [None]
  - CONTUSION [None]
  - ARTHRALGIA [None]
  - OSTEOARTHRITIS [None]
  - LACERATION [None]
  - BALANCE DISORDER [None]
  - JOINT SWELLING [None]
  - FALL [None]
  - SPINAL OSTEOARTHRITIS [None]
  - HAEMARTHROSIS [None]
  - JOINT WARMTH [None]
  - MUSCLE SPASMS [None]
